FAERS Safety Report 6330860-9 (Version None)
Quarter: 2009Q3

REPORT INFORMATION
  Report Type: 
  Country: None (occurrence: None)
  Receive Date: 20090827
  Receipt Date: 20090825
  Transmission Date: 20100115
  Serious: Yes (Death, Other)
  Sender: FDA-Public Use
  Company Number: US-JNJFOC-20090808286

PATIENT
  Sex: Male

DRUGS (3)
  1. FENTANYL TRANSDERMAL SYSTEM [Suspect]
     Indication: PAIN
     Dosage: 2 PATCHES OF 100 UG/HR AND 1 PATCH OF 50 UG/HR
     Route: 062
  2. DILAUDID [Concomitant]
     Indication: PAIN
     Route: 048
  3. LORTAB [Concomitant]
     Indication: PAIN
     Route: 048

REACTIONS (4)
  - DISEASE PROGRESSION [None]
  - DISORIENTATION [None]
  - ENURESIS [None]
  - SNORING [None]
